FAERS Safety Report 10730257 (Version 1)
Quarter: 2015Q1

REPORT INFORMATION
  Report Type: Spontaneous
  Country: FR (occurrence: FR)
  Receive Date: 20150122
  Receipt Date: 20150122
  Transmission Date: 20150721
  Serious: Yes (Hospitalization)
  Sender: FDA-Public Use
  Company Number: ALCN2014FR007283

PATIENT
  Age: 46 Year
  Sex: Female

DRUGS (2)
  1. CYCLOPENTOLATE HCL [Suspect]
     Active Substance: CYCLOPENTOLATE HYDROCHLORIDE
     Indication: CYCLOPLEGIC REFRACTION
     Dosage: UNK
     Route: 047
     Dates: start: 20141203, end: 20141203
  2. DEXAFREE//DEXAMETHASONE [Suspect]
     Active Substance: DEXAMETHASONE
     Indication: UVEITIS
     Dosage: 1 GTT, TID
     Route: 047
     Dates: start: 20141128

REACTIONS (1)
  - Angle closure glaucoma [Recovered/Resolved]

NARRATIVE: CASE EVENT DATE: 20141204
